FAERS Safety Report 4509380-X (Version None)
Quarter: 2004Q4

REPORT INFORMATION
  Report Type: 
  Country: None (occurrence: None)
  Receive Date: 20041025
  Receipt Date: 20040809
  Transmission Date: 20050328
  Serious: Yes (Other)
  Sender: FDA-Public Use
  Company Number: US-JNJFOC-20040803120

PATIENT
  Age: 63 Year
  Sex: Female
  Weight: 72.5755 kg

DRUGS (7)
  1. REMICADE [Suspect]
     Indication: RHEUMATOID ARTHRITIS
     Dosage: INTRAVENOUS
     Route: 042
     Dates: start: 20020101
  2. PREDNISONE [Concomitant]
  3. OXYCONTIN [Concomitant]
  4. PERCOCET [Concomitant]
  5. TRAMADOL [Concomitant]
  6. PROZAC [Concomitant]
  7. METHOTREXATE [Concomitant]

REACTIONS (4)
  - FATIGUE [None]
  - INFUSION RELATED REACTION [None]
  - MYALGIA [None]
  - PAIN [None]
